FAERS Safety Report 5463126-X (Version None)
Quarter: 2007Q3

REPORT INFORMATION
  Report Type: 
  Country: None (occurrence: None)
  Receive Date: 20070918
  Receipt Date: 20070918
  Transmission Date: 20080115
  Serious: No
  Sender: FDA-Public Use
  Company Number: None

PATIENT
  Sex: Male

DRUGS (2)
  1. MIKE AND IKE     JUST BORN INC. [Suspect]
  2. CEPHALEXIN [Suspect]

REACTIONS (1)
  - MEDICATION TAMPERING [None]
